FAERS Safety Report 22362051 (Version 1)
Quarter: 2023Q2

REPORT INFORMATION
  Report Type: Spontaneous
  Country: US (occurrence: US)
  Receive Date: 20230524
  Receipt Date: 20230524
  Transmission Date: 20230722
  Serious: Yes (Other)
  Sender: FDA-Public Use
  Company Number: US-PFIZER INC-PV202300089637

PATIENT
  Age: 57 Year
  Sex: Female

DRUGS (4)
  1. XALKORI [Suspect]
     Active Substance: CRIZOTINIB
     Dosage: 500 MG, DAILY
     Dates: start: 20230314, end: 20230323
  2. XALKORI [Suspect]
     Active Substance: CRIZOTINIB
     Dosage: 500 MG, DAILY
     Dates: start: 20230330
  3. XALKORI [Suspect]
     Active Substance: CRIZOTINIB
     Dosage: ONE 250MG CAPSULE ONE DAY AND TWO 250MG CAPSULES THE NEXT DAY, ALTERNATE DAY
     Dates: start: 20230509
  4. XALKORI [Suspect]
     Active Substance: CRIZOTINIB
     Dosage: ONE 250MG CAPSULE ONE DAY AND TWO 250MG CAPSULES THE NEXT DAY, ALTERNATE DAY
     Dates: start: 20230509

REACTIONS (12)
  - Pulmonary oedema [Unknown]
  - Musculoskeletal chest pain [Unknown]
  - Illness [Unknown]
  - Gastroenteritis viral [Unknown]
  - Rash [Unknown]
  - Body temperature increased [Unknown]
  - Gait inability [Unknown]
  - Asthenia [Unknown]
  - Vomiting [Unknown]
  - Throat irritation [Unknown]
  - Dyspnoea [Unknown]
  - Off label use [Unknown]
